FAERS Safety Report 25429851 (Version 1)
Quarter: 2025Q2

REPORT INFORMATION
  Report Type: Spontaneous
  Country: CN (occurrence: CN)
  Receive Date: 20250612
  Receipt Date: 20250612
  Transmission Date: 20250717
  Serious: Yes (Hospitalization, Disabling, Other)
  Sender: TEVA
  Company Number: CN-TEVA-VS-3340362

PATIENT
  Age: 65 Year
  Sex: Male
  Weight: 59.75 kg

DRUGS (14)
  1. TREANDA [Suspect]
     Active Substance: BENDAMUSTINE HYDROCHLORIDE
     Indication: Mantle cell lymphoma
     Route: 065
     Dates: start: 20250517, end: 20250518
  2. TREANDA [Suspect]
     Active Substance: BENDAMUSTINE HYDROCHLORIDE
     Indication: Mantle cell lymphoma
     Dosage: PATIENT ROA - INTRAVENOUS DRIP
     Route: 065
     Dates: start: 20250517, end: 20250518
  3. ETOPOSIDE [Suspect]
     Active Substance: ETOPOSIDE
     Indication: Mantle cell lymphoma
     Dosage: PATIENT ROA - INTRAVENOUS DRIP
     Route: 065
     Dates: start: 20250519, end: 20250522
  4. ETOPOSIDE [Suspect]
     Active Substance: ETOPOSIDE
     Indication: Mantle cell lymphoma
     Dosage: PATIENT ROA - INTRAVENOUS DRIP
     Route: 065
     Dates: start: 20250519, end: 20250522
  5. MELPHALAN HYDROCHLORIDE [Suspect]
     Active Substance: MELPHALAN HYDROCHLORIDE
     Indication: Mantle cell lymphoma
     Dosage: PATIENT ROA - INTRAVENOUS DRIP
     Route: 065
     Dates: start: 20250523, end: 20250523
  6. MELPHALAN HYDROCHLORIDE [Suspect]
     Active Substance: MELPHALAN HYDROCHLORIDE
     Indication: Mantle cell lymphoma
     Dosage: PATIENT ROA - INTRAVENOUS DRIP
     Route: 065
     Dates: start: 20250523, end: 20250523
  7. CYTARABINE [Suspect]
     Active Substance: CYTARABINE
     Indication: Mantle cell lymphoma
     Dosage: PATIENT ROA - INTRAVENOUS DRIP
     Route: 065
     Dates: start: 20250519, end: 20250522
  8. WATER FOR INJECTION [Suspect]
     Active Substance: WATER
     Indication: Mantle cell lymphoma
     Route: 065
     Dates: start: 20250517, end: 20250518
  9. SODIUM CHLORIDE [Concomitant]
     Active Substance: SODIUM CHLORIDE
     Dosage: PATIENT ROA - INTRAVENOUS DRIP
     Route: 065
     Dates: start: 20250517, end: 20250518
  10. SODIUM CHLORIDE [Concomitant]
     Active Substance: SODIUM CHLORIDE
     Dosage: PATIENT ROA - INTRAVENOUS DRIP
     Route: 065
     Dates: start: 20250519, end: 20250522
  11. SODIUM CHLORIDE [Concomitant]
     Active Substance: SODIUM CHLORIDE
     Dosage: PATIENT ROA - INTRAVENOUS DRIP
     Route: 065
     Dates: start: 20250519, end: 20250522
  12. SODIUM CHLORIDE [Concomitant]
     Active Substance: SODIUM CHLORIDE
     Dosage: PATIENT ROA - INTRAVENOUS DRIP
     Route: 065
     Dates: start: 20250519, end: 20250522
  13. SODIUM CHLORIDE [Concomitant]
     Active Substance: SODIUM CHLORIDE
     Dosage: PATIENT ROA - INTRAVENOUS DRIP
     Route: 065
     Dates: start: 20250523, end: 20250523
  14. SODIUM CHLORIDE [Concomitant]
     Active Substance: SODIUM CHLORIDE
     Dosage: PATIENT ROA - INTRAVENOUS DRIP
     Route: 065
     Dates: start: 20250523, end: 20250523

REACTIONS (3)
  - Agranulocytosis [Unknown]
  - White blood cell count decreased [Unknown]
  - Platelet count decreased [Unknown]

NARRATIVE: CASE EVENT DATE: 20250528
